FAERS Safety Report 10029600 (Version 1)
Quarter: 2014Q1

REPORT INFORMATION
  Report Type: Spontaneous
  Country: US (occurrence: None)
  Receive Date: 20140320
  Receipt Date: 20140320
  Transmission Date: 20141002
  Serious: Yes (Other)
  Sender: FDA-Public Use
  Company Number: None

PATIENT
  Age: 59 Year
  Sex: Female
  Weight: 81.83 kg

DRUGS (1)
  1. BROMOCRIPTINE [Suspect]
     Dosage: ONE TABLET DAILY PO
     Route: 048
     Dates: start: 20130212, end: 20140307

REACTIONS (1)
  - Blood prolactin increased [None]
